FAERS Safety Report 14015133 (Version 1)
Quarter: 2017Q3

REPORT INFORMATION
  Report Type: Spontaneous
  Country: US (occurrence: US)
  Receive Date: 20170927
  Receipt Date: 20170927
  Transmission Date: 20171128
  Serious: Yes (Other)
  Sender: FDA-Public Use
  Company Number: US-ROCHE-1990872

PATIENT
  Age: 11 Year
  Sex: Female

DRUGS (12)
  1. TAMIFLU [Suspect]
     Active Substance: OSELTAMIVIR PHOSPHATE
     Indication: PRODUCT USED FOR UNKNOWN INDICATION
     Route: 065
  2. FLONASE [Concomitant]
     Active Substance: FLUTICASONE PROPIONATE
     Indication: HYPERSENSITIVITY
     Dosage: 50 MCG/ACTIVATION 2 SPRAYS IN EACH NOSTRIL
     Route: 065
     Dates: start: 20151015
  3. DECADRON [Concomitant]
     Active Substance: DEXAMETHASONE
  4. XOLAIR [Suspect]
     Active Substance: OMALIZUMAB
     Indication: ASTHMA
     Route: 058
     Dates: start: 20170718, end: 20170802
  5. EPINEPHRINE. [Concomitant]
     Active Substance: EPINEPHRINE
  6. ALBUTEROL. [Concomitant]
     Active Substance: ALBUTEROL
     Dosage: 90MCG/ACTIVATION AND 2-4 PUFFS AS NEEDED
     Route: 055
  7. DULERA [Concomitant]
     Active Substance: FORMOTEROL FUMARATE DIHYDRATE\MOMETASONE FUROATE
     Indication: ASTHMA
     Dosage: 200MCG-5MCG
     Route: 055
     Dates: start: 20141111
  8. EPIPEN [Concomitant]
     Active Substance: EPINEPHRINE
     Indication: HYPERSENSITIVITY
     Dosage: 0.3MG/0.3ML
     Route: 065
     Dates: start: 20170707
  9. HYDROCORTISONE. [Concomitant]
     Active Substance: HYDROCORTISONE
     Indication: HYPERSENSITIVITY
     Route: 061
  10. SINGULAIR [Concomitant]
     Active Substance: MONTELUKAST SODIUM
     Indication: HYPERSENSITIVITY
     Route: 048
     Dates: start: 2013
  11. ALBUTEROL. [Concomitant]
     Active Substance: ALBUTEROL
     Indication: ASTHMA
     Dosage: 2.5 MG/3ML QUANTITY SUFFICIENT.
     Route: 055
     Dates: start: 2013
  12. ZYRTEC [Concomitant]
     Active Substance: CETIRIZINE HYDROCHLORIDE
     Indication: HYPERSENSITIVITY
     Route: 048
     Dates: start: 2013

REACTIONS (5)
  - Wheezing [Recovered/Resolved]
  - Laryngospasm [Recovered/Resolved]
  - Vomiting [Recovered/Resolved]
  - Urticaria [Unknown]
  - Bronchospasm [Recovered/Resolved]

NARRATIVE: CASE EVENT DATE: 20170802
